FAERS Safety Report 7846212-6 (Version None)
Quarter: 2011Q4

REPORT INFORMATION
  Report Type: 
  Country: None (occurrence: None)
  Receive Date: 20111025
  Receipt Date: 20111010
  Transmission Date: 20120403
  Serious: Yes (Other)
  Sender: FDA-Public Use
  Company Number: US-ROCHE-1003562

PATIENT

DRUGS (3)
  1. LAPATINIB [Suspect]
     Indication: NEOPLASM
     Route: 048
  2. OXALIPLATIN [Suspect]
     Indication: NEOPLASM
     Route: 042
  3. XELODA [Suspect]
     Indication: NEOPLASM
     Route: 048

REACTIONS (7)
  - DIZZINESS [None]
  - HYPONATRAEMIA [None]
  - HYPOKALAEMIA [None]
  - DIARRHOEA [None]
  - DEHYDRATION [None]
  - FATIGUE [None]
  - BLOOD BILIRUBIN INCREASED [None]
